FAERS Safety Report 21257349 (Version 1)
Quarter: 2022Q3

REPORT INFORMATION
  Report Type: Spontaneous
  Country: FR (occurrence: FR)
  Receive Date: 20220826
  Receipt Date: 20220826
  Transmission Date: 20221027
  Serious: Yes (Other)
  Sender: FDA-Public Use
  Company Number: None

PATIENT
  Age: 77 Year
  Sex: Male

DRUGS (2)
  1. BETAMETHASONE DIPROPIONATE\BETAMETHASONE SODIUM PHOSPHATE [Suspect]
     Active Substance: BETAMETHASONE DIPROPIONATE\BETAMETHASONE SODIUM PHOSPHATE
     Indication: Tissue infiltration
     Dosage: SUSPENSION INJECTABLE
     Dates: start: 20220719, end: 20220719
  2. COMIRNATY [Suspect]
     Active Substance: TOZINAMERAN
     Indication: COVID-19 immunisation
     Dosage: R2, CONCENTRATE FOR INJECTION. COVID-19 (MODIFIED NUCLEOSIDE) MRNA VACCINE
     Route: 030
     Dates: start: 20220711, end: 20220711

REACTIONS (3)
  - Rash pruritic [Recovered/Resolved]
  - Allergic oedema [Recovered/Resolved]
  - Dysphagia [Recovered/Resolved]

NARRATIVE: CASE EVENT DATE: 20220720
